FAERS Safety Report 11322170 (Version 1)
Quarter: 2015Q3

REPORT INFORMATION
  Report Type: Spontaneous
  Country: CA (occurrence: CA)
  Receive Date: 20150729
  Receipt Date: 20150729
  Transmission Date: 20151125
  Serious: Yes (Other)
  Sender: FDA-Public Use
  Company Number: CA-TEVA-581309USA

PATIENT
  Sex: Male

DRUGS (1)
  1. RATIO-PREDNISOLONE 1% EYE DROPS [Suspect]
     Active Substance: PREDNISOLONE
     Indication: PRODUCT USED FOR UNKNOWN INDICATION
     Dates: start: 20140116, end: 201507

REACTIONS (3)
  - Intraocular pressure increased [Unknown]
  - Ulcerative keratitis [Unknown]
  - Ocular hyperaemia [Unknown]
